FAERS Safety Report 6762604-0 (Version None)
Quarter: 2010Q2

REPORT INFORMATION
  Report Type: 
  Country: None (occurrence: None)
  Receive Date: 20100609
  Receipt Date: 20100602
  Transmission Date: 20101027
  Serious: Yes (Hospitalization)
  Sender: FDA-Public Use
  Company Number: FR-MERCK-1006FRA00013

PATIENT
  Age: 64 Year
  Sex: Female

DRUGS (12)
  1. JANUVIA [Suspect]
     Indication: TYPE 2 DIABETES MELLITUS
     Route: 048
     Dates: start: 20100101, end: 20100428
  2. JANUVIA [Suspect]
     Route: 048
     Dates: start: 20100430, end: 20100503
  3. ACETAMINOPHEN AND CODEINE PHOSPHATE [Concomitant]
     Route: 065
     Dates: end: 20100503
  4. ACETAMINOPHEN AND CODEINE PHOSPHATE [Concomitant]
     Route: 065
     Dates: start: 20100505
  5. CALCIUM (UNSPECIFIED) AND VITAMIN D (UNSPECIFIED) [Concomitant]
     Route: 065
     Dates: end: 20100503
  6. CALCIUM (UNSPECIFIED) AND VITAMIN D (UNSPECIFIED) [Concomitant]
     Route: 065
     Dates: start: 20100505
  7. VILDAGLIPTIN [Suspect]
     Indication: TYPE 2 DIABETES MELLITUS
     Route: 048
     Dates: start: 20100429, end: 20100430
  8. CLOPIDOGREL BISULFATE [Concomitant]
     Route: 065
  9. GLICLAZIDE [Suspect]
     Indication: TYPE 2 DIABETES MELLITUS
     Route: 048
     Dates: end: 20100430
  10. COZAAR [Concomitant]
     Route: 065
     Dates: end: 20100503
  11. COZAAR [Concomitant]
     Route: 065
     Dates: start: 20100505
  12. PRISTINAMYCIN [Suspect]
     Indication: ABSCESS LIMB
     Route: 048
     Dates: start: 20100429, end: 20100430

REACTIONS (4)
  - DYSPNOEA [None]
  - EYELID OEDEMA [None]
  - PRURITUS [None]
  - RASH MACULO-PAPULAR [None]
